FAERS Safety Report 6736738-0 (Version None)
Quarter: 2010Q2

REPORT INFORMATION
  Report Type: 
  Country: None (occurrence: None)
  Receive Date: 20100521
  Receipt Date: 20100518
  Transmission Date: 20101027
  Serious: Yes (Other)
  Sender: FDA-Public Use
  Company Number: PHHY2010FR32281

PATIENT
  Age: 17 Year

DRUGS (2)
  1. CARBAMAZEPINE [Suspect]
     Dosage: UNK, UNK
  2. AMOXICILLIN [Suspect]
     Dosage: UNK, UNK

REACTIONS (4)
  - DRUG RASH WITH EOSINOPHILIA AND SYSTEMIC SYMPTOMS [None]
  - PHARYNGITIS [None]
  - RASH [None]
  - SKIN TEST POSITIVE [None]
